FAERS Safety Report 4941709-0 (Version None)
Quarter: 2006Q1

REPORT INFORMATION
  Report Type: 
  Country: None (occurrence: None)
  Receive Date: 20060308
  Receipt Date: 20060228
  Transmission Date: 20060701
  Serious: Yes (Congenital Anomaly)
  Sender: FDA-Public Use
  Company Number: 2006029893

PATIENT
  Sex: Male
  Weight: 3.37 kg

DRUGS (6)
  1. VIRACEPT [Suspect]
     Indication: HIV TEST POSITIVE
     Dosage: 2500 MG , ORAL
     Route: 048
     Dates: start: 20040130, end: 20040601
  2. TRUVADA [Suspect]
     Indication: HIV TEST POSITIVE
     Dosage: 300 MG, ORAL
     Route: 048
     Dates: start: 20040601, end: 20040720
  3. COMBIVIR [Suspect]
     Indication: HIV TEST POSITIVE
     Dosage: 300 MG, ORAL
     Route: 048
     Dates: start: 20040130, end: 20040601
  4. KALETRA [Suspect]
     Indication: HIV TEST POSITIVE
     Dosage: 600 MG, ORAL
     Route: 048
     Dates: start: 20040601
  5. RETROVIR [Suspect]
     Indication: HIV TEST POSITIVE
     Dosage: 600 MG, ORAL
     Route: 048
     Dates: start: 20040601, end: 20040720
  6. FOLIC ACID [Concomitant]

REACTIONS (7)
  - ABDOMINAL DISTENSION [None]
  - ABDOMINAL HERNIA [None]
  - CARDIAC MURMUR [None]
  - CONGENITAL ANOMALY [None]
  - CRYPTORCHISM [None]
  - DRUG EXPOSURE DURING PREGNANCY [None]
  - PREGNANCY [None]
